FAERS Safety Report 23707421 (Version 1)
Quarter: 2024Q2

REPORT INFORMATION
  Report Type: Spontaneous
  Country: CN (occurrence: CN)
  Receive Date: 20240404
  Receipt Date: 20240404
  Transmission Date: 20240716
  Serious: Yes (Hospitalization, Other)
  Sender: FDA-Public Use
  Company Number: CN-SA-SAC20240401000054

PATIENT
  Age: 83 Year
  Sex: Female

DRUGS (4)
  1. INSULIN GLARGINE [Suspect]
     Active Substance: INSULIN GLARGINE
     Indication: Diabetes mellitus
     Dosage: 20 IU, HS (EVERY NIGHT)
     Route: 058
     Dates: start: 20230201, end: 20240305
  2. KETOPROFEN [Concomitant]
     Active Substance: KETOPROFEN
     Indication: Back pain
     Dosage: UNK
  3. METFORMIN HYDROCHLORIDE [Concomitant]
     Active Substance: METFORMIN HYDROCHLORIDE
     Indication: Diabetes mellitus
     Dosage: 0.5 G,BID
     Route: 048
     Dates: start: 20230103, end: 20240305
  4. DICLOFENAC SODIUM [Concomitant]
     Active Substance: DICLOFENAC\DICLOFENAC SODIUM
     Indication: Back pain
     Dosage: 0.10 G, QD
     Route: 048
     Dates: start: 20240304, end: 20240305

REACTIONS (4)
  - Cough [Not Recovered/Not Resolved]
  - Hypoglycaemic encephalopathy [Recovered/Resolved]
  - Altered state of consciousness [Recovered/Resolved]
  - Dysarthria [Recovered/Resolved]

NARRATIVE: CASE EVENT DATE: 20240304
